FAERS Safety Report 10884240 (Version 1)
Quarter: 2015Q1

REPORT INFORMATION
  Report Type: Spontaneous
  Country: DE (occurrence: None)
  Receive Date: 20150227
  Receipt Date: 20150227
  Transmission Date: 20150721
  Serious: Yes (Death)
  Sender: FDA-Public Use
  Company Number: FK201500901

PATIENT
  Age: 76 Year
  Sex: Female

DRUGS (1)
  1. HEPARIN SODIUM (MANUFACTURER UNKNOWN) (HEPARIN SODIUM) (HEPARIN SODIUM) [Suspect]
     Active Substance: HEPARIN SODIUM
     Indication: CORONARY ARTERY BYPASS

REACTIONS (4)
  - Post procedural complication [None]
  - Heparin-induced thrombocytopenia [None]
  - Myocardial infarction [None]
  - Coronary vascular graft occlusion [None]
